FAERS Safety Report 25928899 (Version 1)
Quarter: 2025Q4

REPORT INFORMATION
  Report Type: Report from Study
  Country: KR (occurrence: KR)
  Receive Date: 20251016
  Receipt Date: 20251016
  Transmission Date: 20260117
  Serious: Yes (Hospitalization, Other)
  Sender: CELLTRION
  Company Number: KR-CELLTRION INC.-2025KR032674

PATIENT

DRUGS (5)
  1. INFLIXIMAB-DYYB [Suspect]
     Active Substance: INFLIXIMAB-DYYB
     Indication: Crohn^s disease
     Dosage: 120 MG, Q2W
     Route: 058
     Dates: start: 20250424
  2. INFLIXIMAB-DYYB [Suspect]
     Active Substance: INFLIXIMAB-DYYB
     Dosage: 120 MG, Q2W
     Route: 058
     Dates: start: 20250206
  3. PENTASA [Concomitant]
     Active Substance: MESALAMINE
     Dosage: 4 TABLET, QD, PO
     Route: 048
     Dates: start: 20210817
  4. AZATHIOPRINE [Concomitant]
     Active Substance: AZATHIOPRINE
     Dosage: 1 TABLET, QD, PO
     Route: 048
     Dates: start: 20210713
  5. AZATHIOPRINE [Concomitant]
     Active Substance: AZATHIOPRINE
     Dosage: 1 TABLET, QD, PO
     Route: 048
     Dates: start: 20210713

REACTIONS (1)
  - Gastric ileus [Recovering/Resolving]

NARRATIVE: CASE EVENT DATE: 20250807
